FAERS Safety Report 6370437-2 (Version None)
Quarter: 2009Q3

REPORT INFORMATION
  Report Type: 
  Country: None (occurrence: None)
  Receive Date: 20090923
  Receipt Date: 20090910
  Transmission Date: 20100115
  Serious: Yes (Hospitalization)
  Sender: FDA-Public Use
  Company Number: GB-GENENTECH-266726

PATIENT
  Age: 7 Year
  Sex: Female

DRUGS (2)
  1. MABTHERA [Suspect]
     Indication: EVANS SYNDROME
     Dosage: UNK
     Route: 065
  2. PREDNISONE [Suspect]
     Indication: EVANS SYNDROME
     Route: 065

REACTIONS (4)
  - HAEMORRHAGE [None]
  - PLEURAL EFFUSION [None]
  - PULMONARY HYPERTENSION [None]
  - PULMONARY OEDEMA [None]
